FAERS Safety Report 5653213-5 (Version None)
Quarter: 2008Q1

REPORT INFORMATION
  Report Type: 
  Country: None (occurrence: None)
  Receive Date: 20080306
  Receipt Date: 20080225
  Transmission Date: 20080703
  Serious: Yes (Life-Threatening, Other)
  Sender: FDA-Public Use
  Company Number: US-ELI_LILLY_AND_COMPANY-US200802006220

PATIENT
  Age: 24 Year

DRUGS (2)
  1. OLANZAPINE [Suspect]
     Route: 055
  2. MARIJUANA [Concomitant]
     Route: 055

REACTIONS (1)
  - DRUG TOXICITY [None]
